FAERS Safety Report 4326273-1 (Version None)
Quarter: 2004Q1

REPORT INFORMATION
  Report Type: 
  Country: None (occurrence: None)
  Receive Date: 20040324
  Receipt Date: 20040304
  Transmission Date: 20041129
  Serious: Yes (Death, Hospitalization)
  Sender: FDA-Public Use
  Company Number: A02200400813

PATIENT
  Age: 79 Year
  Sex: Male

DRUGS (3)
  1. PLAVIX [Suspect]
     Indication: CEREBROVASCULAR ACCIDENT
     Dosage: 75 MG OD, ORAL
     Route: 048
     Dates: start: 20040124, end: 20040210
  2. ACETYLSALICYLIC ACID SRT [Suspect]
     Indication: CEREBROVASCULAR ACCIDENT
     Dosage: 75 MG OD, ORAL
     Route: 048
     Dates: start: 20040124, end: 20040210
  3. PAROXETINE HCL [Concomitant]

REACTIONS (1)
  - HEPATITIS FULMINANT [None]
